FAERS Safety Report 7717316-3 (Version None)
Quarter: 2011Q3

REPORT INFORMATION
  Report Type: 
  Country: None (occurrence: None)
  Receive Date: 20110826
  Receipt Date: 20110826
  Transmission Date: 20111222
  Serious: Yes (Death)
  Sender: FDA-Public Use
  Company Number: None

PATIENT
  Sex: Male

DRUGS (3)
  1. DOXYCYCLINE [Concomitant]
  2. LISINOPRIL [Concomitant]
  3. CHANTIX [Suspect]
     Indication: TOBACCO ABUSE
     Dosage: CHANTIX STARTER PACK AS INDICATED 047
     Route: 048
     Dates: start: 20110408, end: 20110419

REACTIONS (9)
  - PYREXIA [None]
  - RASH GENERALISED [None]
  - OROPHARYNGEAL PAIN [None]
  - STEVENS-JOHNSON SYNDROME [None]
  - CONFUSIONAL STATE [None]
  - SWELLING FACE [None]
  - DYSPHAGIA [None]
  - LETHARGY [None]
  - COUGH [None]
